FAERS Safety Report 9012831 (Version 1)
Quarter: 2013Q1

REPORT INFORMATION
  Report Type: Spontaneous
  Country: AR (occurrence: AR)
  Receive Date: 20130114
  Receipt Date: 20130114
  Transmission Date: 20140127
  Serious: Yes (Death)
  Sender: FDA-Public Use
  Company Number: AR-AMGEN-ARGSP2013002244

PATIENT
  Age: 43 Year
  Sex: Male

DRUGS (3)
  1. ENBREL [Suspect]
     Indication: RHEUMATOID ARTHRITIS
     Dosage: 50 MG, WEEKLY
     Route: 058
     Dates: start: 20081007, end: 2012
  2. METHOTREXATE [Concomitant]
     Dosage: UNK
  3. MEPREDNISONE [Concomitant]
     Dosage: UNK

REACTIONS (4)
  - Infarction [Fatal]
  - General physical health deterioration [Fatal]
  - Cardiomegaly [Fatal]
  - Pneumonia [Fatal]
